FAERS Safety Report 18565632 (Version 1)
Quarter: 2020Q4

REPORT INFORMATION
  Report Type: Spontaneous
  Country: CN (occurrence: CN)
  Receive Date: 20201201
  Receipt Date: 20201201
  Transmission Date: 20210114
  Serious: Yes (Hospitalization)
  Sender: FDA-Public Use
  Company Number: CN-LUPIN PHARMACEUTICALS INC.-2020-07803

PATIENT
  Sex: Male

DRUGS (5)
  1. ETOPOSIDE. [Suspect]
     Active Substance: ETOPOSIDE
     Indication: FAMILIAL HAEMOPHAGOCYTIC LYMPHOHISTIOCYTOSIS
     Dosage: 100 MILLIGRAM/SQ. METER(ON DAY 1, 8 AND 15 ONCE A WEEK)
     Route: 065
  2. METHYLPREDNISOLONE. [Suspect]
     Active Substance: METHYLPREDNISOLONE
     Dosage: UNK (GRADUAL REDUCTION TO 0 MG/KG, DAYS 7?21)
     Route: 065
  3. DOXORUBICIN HYDROCHLORIDE LIPOSOME [Suspect]
     Active Substance: DOXORUBICIN HYDROCHLORIDE
     Indication: FAMILIAL HAEMOPHAGOCYTIC LYMPHOHISTIOCYTOSIS
     Dosage: 25 MILLIGRAM/SQ. METER (ON DAY 1)
     Route: 065
  4. METHYLPREDNISOLONE. [Suspect]
     Active Substance: METHYLPREDNISOLONE
     Indication: FAMILIAL HAEMOPHAGOCYTIC LYMPHOHISTIOCYTOSIS
     Dosage: 15 MILLIGRAM/KILOGRAM (ON DAY 1-3)
     Route: 065
  5. METHYLPREDNISOLONE. [Suspect]
     Active Substance: METHYLPREDNISOLONE
     Dosage: 2 MILLIGRAM/KILOGRAM (ON DAY 4-6 WITH SLOW REDUCTION TO 0 MG/KG FROM DAYS 7-21.)
     Route: 065

REACTIONS (1)
  - Drug ineffective [Unknown]
